FAERS Safety Report 15012386 (Version 1)
Quarter: 2018Q2

REPORT INFORMATION
  Report Type: Spontaneous
  Country: US (occurrence: US)
  Receive Date: 20180530
  Receipt Date: 20180530
  Transmission Date: 20180711
  Serious: Yes (Hospitalization, Other)
  Sender: FDA-Public Use
  Company Number: None

PATIENT
  Age: 87 Year

DRUGS (1)
  1. DETROL LA [Suspect]
     Active Substance: TOLTERODINE TARTRATE
     Dates: start: 20170120

REACTIONS (4)
  - Dizziness [None]
  - Fall [None]
  - Hip fracture [None]
  - Orthostatic hypotension [None]

NARRATIVE: CASE EVENT DATE: 20170120
